FAERS Safety Report 11202333 (Version 1)
Quarter: 2015Q2

REPORT INFORMATION
  Report Type: Spontaneous
  Country: JP (occurrence: JP)
  Receive Date: 20150619
  Receipt Date: 20150619
  Transmission Date: 20150821
  Serious: Yes (Other)
  Sender: FDA-Public Use
  Company Number: JP-PFIZER INC-2015200568

PATIENT
  Age: 21 Year
  Sex: Male

DRUGS (1)
  1. DALACIN [Suspect]
     Active Substance: CLINDAMYCIN\CLINDAMYCIN PHOSPHATE
     Dosage: UNK
     Route: 048

REACTIONS (2)
  - Oesophageal ulcer [Unknown]
  - Foreign body [Unknown]
